FAERS Safety Report 5664734-3 (Version None)
Quarter: 2008Q1

REPORT INFORMATION
  Report Type: 
  Country: None (occurrence: None)
  Receive Date: 20080314
  Receipt Date: 20080312
  Transmission Date: 20080703
  Serious: Yes (Death)
  Sender: FDA-Public Use
  Company Number: US-ASTRAZENECA-2008UW05031

PATIENT
  Age: 36 Year
  Sex: Female
  Weight: 90.7 kg

DRUGS (6)
  1. SEROQUEL [Suspect]
     Route: 048
  2. EFFEXOR [Suspect]
  3. XANAX [Concomitant]
  4. VALIUM [Concomitant]
  5. TOPAMAX [Concomitant]
  6. METHADONE [Concomitant]

REACTIONS (4)
  - ACCIDENTAL POISONING [None]
  - HEADACHE [None]
  - OBSTRUCTIVE AIRWAYS DISORDER [None]
  - ROAD TRAFFIC ACCIDENT [None]
